FAERS Safety Report 15980798 (Version 1)
Quarter: 2019Q1

REPORT INFORMATION
  Report Type: Spontaneous
  Country: US (occurrence: US)
  Receive Date: 20190218
  Receipt Date: 20190218
  Transmission Date: 20190418
  Serious: Yes (Life-Threatening, Hospitalization)
  Sender: FDA-Public Use
  Company Number: None

PATIENT
  Age: 51 Year
  Sex: Male
  Weight: 148.5 kg

DRUGS (9)
  1. XIUDIO [Concomitant]
  2. ZOFRAN [Suspect]
     Active Substance: ONDANSETRON HYDROCHLORIDE
  3. LISINOPRIL. [Concomitant]
     Active Substance: LISINOPRIL
  4. NOVOLOG [Concomitant]
     Active Substance: INSULIN ASPART
  5. LEVIMEIR [Concomitant]
  6. ZOLOFT [Suspect]
     Active Substance: SERTRALINE HYDROCHLORIDE
     Indication: VOMITING
     Dosage: ?          QUANTITY:1 INJECTION(S);?
     Route: 058
     Dates: start: 20100104, end: 20181013
  7. ALLOPURINOL. [Concomitant]
     Active Substance: ALLOPURINOL
  8. WELLBUTRON [Concomitant]
  9. ZOLOFT [Suspect]
     Active Substance: SERTRALINE HYDROCHLORIDE
     Indication: FEELING OF RELAXATION
     Dosage: ?          QUANTITY:1 INJECTION(S);?
     Route: 058
     Dates: start: 20100104, end: 20181013

REACTIONS (4)
  - Pyrexia [None]
  - Hallucination [None]
  - Confusional state [None]
  - Encephalopathy [None]

NARRATIVE: CASE EVENT DATE: 20181007
